FAERS Safety Report 26102412 (Version 1)
Quarter: 2025Q4

REPORT INFORMATION
  Report Type: Spontaneous
  Country: JP (occurrence: JP)
  Receive Date: 20251128
  Receipt Date: 20251128
  Transmission Date: 20260118
  Serious: Yes (Life-Threatening, Hospitalization, Other)
  Sender: AIPING PHARMACEUTICAL
  Company Number: JP-AIPING-2025AILIT00201

PATIENT
  Age: 93 Year
  Sex: Male

DRUGS (3)
  1. HALOPERIDOL [Suspect]
     Active Substance: HALOPERIDOL
     Indication: Delirium
     Route: 042
  2. HALOPERIDOL [Suspect]
     Active Substance: HALOPERIDOL
     Indication: Product use in unapproved indication
  3. HALOPERIDOL [Suspect]
     Active Substance: HALOPERIDOL
     Indication: Delirium

REACTIONS (3)
  - Immune thrombocytopenia [Recovered/Resolved]
  - Product use issue [Unknown]
  - Product use in unapproved indication [Unknown]
